FAERS Safety Report 13313052 (Version 1)
Quarter: 2017Q1

REPORT INFORMATION
  Report Type: Spontaneous
  Country: FR (occurrence: FR)
  Receive Date: 20170309
  Receipt Date: 20170309
  Transmission Date: 20170428
  Serious: Yes (Hospitalization, Other)
  Sender: FDA-Public Use
  Company Number: FR-PFIZER INC-2017098844

PATIENT
  Age: 16 Month
  Sex: Female

DRUGS (6)
  1. MYLAN DEXAMETHASONE [Suspect]
     Active Substance: DEXAMETHASONE SODIUM PHOSPHATE
     Dosage: TAPERED OFF
     Route: 042
     Dates: start: 20161028, end: 20161103
  2. KIDROLASE [Concomitant]
     Active Substance: ASPARAGINASE
     Indication: ACUTE LYMPHOCYTIC LEUKAEMIA
     Dosage: UNK
  3. DAUNORUBICIN [Concomitant]
     Active Substance: DAUNORUBICIN
     Indication: ACUTE LYMPHOCYTIC LEUKAEMIA
     Dosage: UNK
  4. MYLAN DEXAMETHASONE [Suspect]
     Active Substance: DEXAMETHASONE SODIUM PHOSPHATE
     Indication: ACUTE LYMPHOCYTIC LEUKAEMIA
     Dosage: 6 MG/M2, DAILY
     Route: 042
     Dates: start: 20161007, end: 20161027
  5. VINCRISTINE SULFATE. [Suspect]
     Active Substance: VINCRISTINE SULFATE
     Indication: ACUTE LYMPHOCYTIC LEUKAEMIA
     Dosage: 1.5 MG/M2, DAILY (0.7 MG DAILY ON D8, D15, D22 AND D29)
     Route: 042
     Dates: start: 20161007, end: 20161028
  6. PREDNISONE ARROW [Suspect]
     Active Substance: PREDNISONE
     Dosage: 30 MG/M2, 2X/DAY
     Route: 048
     Dates: start: 20160929, end: 20161006

REACTIONS (3)
  - Bone marrow failure [Recovered/Resolved]
  - Myopathy [Recovering/Resolving]
  - Cushing^s syndrome [Unknown]

NARRATIVE: CASE EVENT DATE: 2016
